FAERS Safety Report 7333005-1 (Version None)
Quarter: 2011Q1

REPORT INFORMATION
  Report Type: 
  Country: None (occurrence: None)
  Receive Date: 20110304
  Receipt Date: 20110224
  Transmission Date: 20110831
  Serious: Yes (Other)
  Sender: FDA-Public Use
  Company Number: US-US-EMD SERONO, INC.-7016376

PATIENT
  Sex: Female

DRUGS (4)
  1. LANTUS [Concomitant]
     Indication: DIABETES MELLITUS
  2. UNSPECIFIED MEDICATION [Concomitant]
     Indication: THYROID DISORDER
  3. REBIF [Suspect]
     Indication: MULTIPLE SCLEROSIS
     Route: 058
     Dates: start: 20100327
  4. HUMALOG [Concomitant]
     Indication: DIABETES MELLITUS

REACTIONS (10)
  - INSOMNIA [None]
  - HYPOKINESIA [None]
  - ALOPECIA [None]
  - MALAISE [None]
  - MULTIPLE SCLEROSIS RELAPSE [None]
  - MUSCLE SPASMS [None]
  - BLOOD GLUCOSE INCREASED [None]
  - HEADACHE [None]
  - DEPRESSION [None]
  - CONSTIPATION [None]
